FAERS Safety Report 11703075 (Version 1)
Quarter: 2015Q4

REPORT INFORMATION
  Report Type: Spontaneous
  Country: US (occurrence: US)
  Receive Date: 20151105
  Receipt Date: 20151105
  Transmission Date: 20160304
  Serious: No
  Sender: FDA-Public Use
  Company Number: US-GLAXOSMITHKLINE-US2015GSK157991

PATIENT
  Sex: Male

DRUGS (1)
  1. ALBIGLUTIDE SOLUTION FOR INJECTION [Suspect]
     Active Substance: ALBIGLUTIDE
     Indication: DIABETES MELLITUS
     Dosage: UNK, WE
     Dates: start: 201507

REACTIONS (1)
  - Sleep disorder [Unknown]
